FAERS Safety Report 4854320-7 (Version None)
Quarter: 2005Q4

REPORT INFORMATION
  Report Type: 
  Country: None (occurrence: None)
  Receive Date: 20051215
  Receipt Date: 20051209
  Transmission Date: 20060501
  Serious: Yes (Other)
  Sender: FDA-Public Use
  Company Number: GB-BOEHRINGER INGELHEIM PHARMACEUTICALS, INC.-2005-UK-02593UK

PATIENT
  Age: 41 Year
  Sex: Female
  Weight: 101 kg

DRUGS (6)
  1. PRAMIPEXOLE [Suspect]
     Route: 048
     Dates: start: 20051104, end: 20051118
  2. IMIPRAMINE [Suspect]
     Route: 048
     Dates: start: 20031128
  3. THYROXINE [Concomitant]
     Route: 048
     Dates: start: 20050303
  4. CETIRIZINE [Concomitant]
     Route: 048
     Dates: start: 20000505
  5. PRIADEL [Concomitant]
     Route: 048
     Dates: start: 20041027, end: 20050831
  6. NORIDAY [Concomitant]
     Route: 048
     Dates: start: 20051129

REACTIONS (2)
  - NEUTROPENIA [None]
  - WHITE BLOOD CELL COUNT DECREASED [None]
